FAERS Safety Report 23887183 (Version 8)
Quarter: 2024Q4

REPORT INFORMATION
  Report Type: Report from Study
  Country: CA (occurrence: CA)
  Receive Date: 20240523
  Receipt Date: 20241127
  Transmission Date: 20250115
  Serious: No
  Sender: ROCHE
  Company Number: CA-ROCHE-3565599

PATIENT
  Sex: Female

DRUGS (1)
  1. OCREVUS [Suspect]
     Active Substance: OCRELIZUMAB
     Indication: Relapsing-remitting multiple sclerosis
     Dosage: 300 MG AT DAY 0 AND 14, THEN 600 MG EVERY 6 MONTH
     Route: 042
     Dates: start: 20240509

REACTIONS (6)
  - Fatigue [Unknown]
  - Cough [Unknown]
  - Nausea [Unknown]
  - COVID-19 [Unknown]
  - Oropharyngeal pain [Unknown]
  - Infusion related reaction [Unknown]
